FAERS Safety Report 9909616 (Version 5)
Quarter: 2014Q4

REPORT INFORMATION
  Report Type: Spontaneous
  Country: US (occurrence: US)
  Receive Date: 20140219
  Receipt Date: 20141201
  Transmission Date: 20150529
  Serious: Yes (Hospitalization, Other)
  Sender: FDA-Public Use
  Company Number: US-GLAXOSMITHKLINE-A1060477A

PATIENT
  Age: 63 Year
  Sex: Female

DRUGS (18)
  1. XANAX [Suspect]
     Active Substance: ALPRAZOLAM
     Indication: PRODUCT USED FOR UNKNOWN INDICATION
     Route: 065
  2. SIMVASTATIN. [Concomitant]
     Active Substance: SIMVASTATIN
  3. METAMUCIL [Suspect]
     Active Substance: PLANTAGO SEED
     Indication: PRODUCT USED FOR UNKNOWN INDICATION
     Dosage: UNK, U
     Route: 065
  4. POTASSIUM [Concomitant]
     Active Substance: POTASSIUM
  5. LANTUS [Concomitant]
     Active Substance: INSULIN GLARGINE
  6. IMITREX [Suspect]
     Active Substance: SUMATRIPTAN\SUMATRIPTAN SUCCINATE
     Indication: MIGRAINE
     Dosage: 1 UNK, QD
     Route: 045
  7. IMITREX [Suspect]
     Active Substance: SUMATRIPTAN\SUMATRIPTAN SUCCINATE
     Dosage: 20 MG, UNK
     Route: 045
     Dates: start: 20121114
  8. LAMICTAL [Suspect]
     Active Substance: LAMOTRIGINE
     Indication: DEPRESSION
     Dosage: UNK, U
     Route: 065
  9. WELLBUTRIN [Concomitant]
     Active Substance: BUPROPION HYDROCHLORIDE
  10. NABUMETONE. [Concomitant]
     Active Substance: NABUMETONE
  11. DIURETIC [Concomitant]
     Active Substance: UNSPECIFIED INGREDIENT
  12. AMILORIDE [Concomitant]
     Active Substance: AMILORIDE
  13. GABAPENTIN. [Concomitant]
     Active Substance: GABAPENTIN
  14. VICODIN [Concomitant]
     Active Substance: ACETAMINOPHEN\HYDROCODONE BITARTRATE
  15. HYDROXYZINE [Concomitant]
     Active Substance: HYDROXYZINE\HYDROXYZINE HYDROCHLORIDE
  16. SUMATRIPTAN. [Suspect]
     Active Substance: SUMATRIPTAN
     Indication: MIGRAINE
     Dosage: UNK, U
     Route: 048
  17. ANTIDEPRESSANT [Suspect]
     Active Substance: UNSPECIFIED INGREDIENT
     Indication: PRODUCT USED FOR UNKNOWN INDICATION
     Dosage: UNK, U
     Route: 065
  18. LASIX [Concomitant]
     Active Substance: FUROSEMIDE

REACTIONS (21)
  - Pain in extremity [Not Recovered/Not Resolved]
  - Incontinence [Unknown]
  - Concussion [Unknown]
  - Panic attack [Recovered/Resolved]
  - Back pain [Not Recovered/Not Resolved]
  - Vertigo [Unknown]
  - Fall [Unknown]
  - Back injury [Unknown]
  - Hypoaesthesia [Not Recovered/Not Resolved]
  - Blood potassium decreased [Recovering/Resolving]
  - Sleep disorder [Unknown]
  - Drug ineffective [Recovered/Resolved]
  - Suicidal ideation [Unknown]
  - Dizziness [Recovering/Resolving]
  - Drug administration error [Unknown]
  - Overdose [Unknown]
  - Neck pain [Not Recovered/Not Resolved]
  - Mydriasis [Unknown]
  - Intervertebral disc protrusion [Unknown]
  - Arthralgia [Unknown]
  - Drug interaction [Unknown]

NARRATIVE: CASE EVENT DATE: 20131214
